FAERS Safety Report 6588585-0 (Version None)
Quarter: 2010Q1

REPORT INFORMATION
  Report Type: 
  Country: None (occurrence: None)
  Receive Date: 20100218
  Receipt Date: 20091117
  Transmission Date: 20100710
  Serious: No
  Sender: FDA-Public Use
  Company Number: US-ALLERGAN-0915913US

PATIENT
  Sex: Female

DRUGS (2)
  1. BOTOX [Suspect]
     Indication: FACIAL SPASM
     Dosage: UNK
     Route: 030
     Dates: start: 20091103, end: 20091103
  2. BOTOX [Suspect]
     Indication: DYSTONIA

REACTIONS (3)
  - EYELID PTOSIS [None]
  - LAGOPHTHALMOS [None]
  - VISION BLURRED [None]
